FAERS Safety Report 11554789 (Version 1)
Quarter: 2015Q3

REPORT INFORMATION
  Report Type: Spontaneous
  Country: US (occurrence: US)
  Receive Date: 20150925
  Receipt Date: 20150925
  Transmission Date: 20151125
  Serious: No
  Sender: FDA-Public Use
  Company Number: US-SHIONOGI, INC-2014001010

PATIENT
  Sex: Male

DRUGS (2)
  1. ROBINUL [Suspect]
     Active Substance: GLYCOPYRROLATE
     Indication: HYPERHIDROSIS
     Dosage: 1 MG, QD
     Route: 065
     Dates: start: 2012
  2. ROBINUL [Suspect]
     Active Substance: GLYCOPYRROLATE
     Indication: OFF LABEL USE

REACTIONS (2)
  - Off label use [Unknown]
  - No adverse event [Unknown]
